FAERS Safety Report 8580381-8 (Version None)
Quarter: 2012Q2

REPORT INFORMATION
  Report Type: 
  Country: None (occurrence: None)
  Receive Date: 20120423
  Receipt Date: 20100226
  Transmission Date: 20120825
  Serious: Yes (Hospitalization)
  Sender: FDA-Public Use
  Company Number: PHHY2009US53686

PATIENT
  Age: 52 Year
  Sex: Male

DRUGS (1)
  1. EXJADE [Suspect]
     Indication: ACUTE LYMPHOCYTIC LEUKAEMIA
     Dosage: 2250 MG, QD, ORAL;

REACTIONS (1)
  - WHITE BLOOD CELL COUNT DECREASED [None]
